FAERS Safety Report 24586479 (Version 4)
Quarter: 2025Q1

REPORT INFORMATION
  Report Type: Spontaneous
  Country: IT (occurrence: IT)
  Receive Date: 20241106
  Receipt Date: 20250127
  Transmission Date: 20250408
  Serious: Yes (Hospitalization, Other)
  Sender: ASTELLAS
  Company Number: IT-VELOXIS PHARMACEUTICALS, INC.-2024-VEL-00564

PATIENT
  Age: 72 Year
  Sex: Female

DRUGS (6)
  1. TACROLIMUS [Suspect]
     Active Substance: TACROLIMUS
     Indication: Renal transplant
     Dosage: 2 TABLET ONCE A DAY
     Route: 048
     Dates: start: 202302, end: 202401
  2. TACROLIMUS [Suspect]
     Active Substance: TACROLIMUS
     Dosage: 1 TABLET ONCE A DAY
     Route: 048
     Dates: start: 202401
  3. COTRIMOXAZOLE [Suspect]
     Active Substance: SULFAMETHOXAZOLE\TRIMETHOPRIM
     Indication: Pneumocystis jirovecii pneumonia
     Route: 065
     Dates: start: 202402
  4. METHYLPREDNISOLONE [Concomitant]
     Active Substance: METHYLPREDNISOLONE
     Indication: Renal transplant
     Dosage: 1/2 TABLET ONCE A DAY
     Route: 065
     Dates: start: 202302, end: 202401
  5. PREDNISONE [Concomitant]
     Active Substance: PREDNISONE
     Indication: Renal transplant
     Dosage: 2 TABLETS ONCE A DAY
     Route: 048
     Dates: start: 202401, end: 202407
  6. PREDNISONE [Concomitant]
     Active Substance: PREDNISONE
     Dosage: 1 TABLET ONCE A DAY
     Route: 048
     Dates: start: 202407

REACTIONS (11)
  - Chronic kidney disease [Unknown]
  - Escherichia urinary tract infection [Recovered/Resolved]
  - Klebsiella urinary tract infection [Recovered/Resolved]
  - Urosepsis [Recovered/Resolved]
  - Infection [Recovered/Resolved]
  - Pathogen resistance [Recovered/Resolved]
  - Klebsiella infection [Recovered/Resolved]
  - Escherichia infection [Recovered/Resolved]
  - Pneumonia adenoviral [Recovered/Resolved]
  - Pneumocystis jirovecii pneumonia [Recovered/Resolved]
  - Tubulointerstitial nephritis [Unknown]

NARRATIVE: CASE EVENT DATE: 20230330
